FAERS Safety Report 7098667-5 (Version None)
Quarter: 2010Q4

REPORT INFORMATION
  Report Type: 
  Country: None (occurrence: None)
  Receive Date: 20101112
  Receipt Date: 20080117
  Transmission Date: 20110411
  Serious: No
  Sender: FDA-Public Use
  Company Number: US-KINGPHARMUSA00001-K200800064

PATIENT
  Sex: Male

DRUGS (1)
  1. EPIPEN JR. [Suspect]
     Indication: HYPERSENSITIVITY
     Dosage: UNK, SINGLE
     Dates: start: 20080116, end: 20080116

REACTIONS (1)
  - SKIN INJURY [None]
